FAERS Safety Report 21208654 (Version 1)
Quarter: 2022Q3

REPORT INFORMATION
  Report Type: Report from Study
  Country: US (occurrence: None)
  Receive Date: 20220812
  Receipt Date: 20220812
  Transmission Date: 20221026
  Serious: Yes (Hospitalization)
  Sender: FDA-Public Use
  Company Number: US-Eisai Medical Research-EC-2022-120950

PATIENT
  Age: 71 Year
  Sex: Female
  Weight: 67 kg

DRUGS (19)
  1. LENVIMA [Suspect]
     Active Substance: LENVATINIB
     Indication: Renal cancer
     Route: 048
     Dates: start: 20211206, end: 20220116
  2. LENVIMA [Suspect]
     Active Substance: LENVATINIB
     Indication: Hepatic cancer
     Route: 048
     Dates: start: 20220122, end: 20220209
  3. LENVIMA [Suspect]
     Active Substance: LENVATINIB
     Indication: Cholangiocarcinoma
     Route: 048
     Dates: start: 20220212, end: 202208
  4. LENVIMA [Suspect]
     Active Substance: LENVATINIB
     Indication: Lung neoplasm malignant
  5. BENADRYL [Concomitant]
     Active Substance: DIPHENHYDRAMINE HYDROCHLORIDE
     Indication: Product used for unknown indication
     Dosage: DOSE AND FREQUENCY UNKNOWN
  6. SODIUM BICARBONATE [Concomitant]
     Active Substance: SODIUM BICARBONATE
  7. METHENAMINE HIPPURATE [Concomitant]
     Active Substance: METHENAMINE HIPPURATE
  8. LANTUS [Concomitant]
     Active Substance: INSULIN GLARGINE
  9. HUMALOG [Concomitant]
     Active Substance: INSULIN LISPRO
  10. VITAMIN D-400 [Concomitant]
  11. CLONIDINE [Concomitant]
     Active Substance: CLONIDINE
  12. LEVOTHYROXINE [Concomitant]
     Active Substance: LEVOTHYROXINE
  13. EVEROLIMUS [Concomitant]
     Active Substance: EVEROLIMUS
  14. ONDANSETRON [Concomitant]
     Active Substance: ONDANSETRON
  15. PANTOPRAZOLE [Concomitant]
     Active Substance: PANTOPRAZOLE
  16. SUCRALFATE [Concomitant]
     Active Substance: SUCRALFATE
  17. LISINOPRIL [Concomitant]
     Active Substance: LISINOPRIL
  18. NIFEDIPINE [Concomitant]
     Active Substance: NIFEDIPINE
  19. ZOFRAN [Concomitant]
     Active Substance: ONDANSETRON HYDROCHLORIDE

REACTIONS (2)
  - Dehydration [Recovered/Resolved]
  - Blood pressure increased [Recovered/Resolved]

NARRATIVE: CASE EVENT DATE: 20220718
